FAERS Safety Report 10722427 (Version 1)
Quarter: 2015Q1

REPORT INFORMATION
  Report Type: Spontaneous
  Country: CA (occurrence: CA)
  Receive Date: 20150119
  Receipt Date: 20150119
  Transmission Date: 20150721
  Serious: Yes (Death, Hospitalization, Other)
  Sender: FDA-Public Use
  Company Number: CA-GLAXOSMITHKLINE-CA2015GSK005754

PATIENT
  Age: 34 Year
  Sex: Female

DRUGS (5)
  1. OPIOIDS [Suspect]
     Active Substance: UNSPECIFIED INGREDIENT
  2. SEDATIVES [Suspect]
     Active Substance: UNSPECIFIED INGREDIENT
  3. ANXIOLYTICS [Suspect]
     Active Substance: UNSPECIFIED INGREDIENT
  4. WELLBUTRIN XL [Suspect]
     Active Substance: BUPROPION HYDROCHLORIDE
     Route: 045
  5. OXYCODONE [Suspect]
     Active Substance: OXYCODONE

REACTIONS (14)
  - Secretion discharge [Unknown]
  - Unresponsive to stimuli [Unknown]
  - Drug abuse [Unknown]
  - Incorrect route of drug administration [Unknown]
  - Feeling abnormal [Unknown]
  - Drug dependence [Unknown]
  - Toxicity to various agents [Unknown]
  - Loss of consciousness [Unknown]
  - Pneumonia [Unknown]
  - Somnolence [Unknown]
  - Pulse absent [Unknown]
  - Snoring [Unknown]
  - Coma [Unknown]
  - Death [Fatal]
